FAERS Safety Report 12329356 (Version 2)
Quarter: 2019Q1

REPORT INFORMATION
  Report Type: Spontaneous
  Country: US (occurrence: US)
  Receive Date: 20160503
  Receipt Date: 20190219
  Transmission Date: 20190417
  Serious: Yes (Hospitalization, Other)
  Sender: FDA-Public Use
  Company Number: US-SA-2016SA086849

PATIENT
  Age: 67 Year
  Sex: Male

DRUGS (1)
  1. SEVELAMER SALT NOT SPECIFIED [Suspect]
     Active Substance: SEVELAMER
     Dosage: UNK UNK,UNK
     Route: 065

REACTIONS (10)
  - Colitis [Unknown]
  - Polyp [Unknown]
  - Melaena [Recovered/Resolved]
  - Gastrointestinal tract adenoma [Unknown]
  - Haematochezia [Recovered/Resolved]
  - Dyspnoea exertional [Unknown]
  - Intestinal ulcer [Unknown]
  - Crystal deposit intestine [Unknown]
  - Gastrointestinal haemorrhage [Unknown]
  - Haemoglobin abnormal [Recovering/Resolving]
